FAERS Safety Report 8553359 (Version 4)
Quarter: 2012Q4

REPORT INFORMATION
  Report Type: 
  Country: US (occurrence: US)
  Receive Date: 20120509
  Receipt Date: 20121130
  Transmission Date: 20130627
  Serious: Yes (Other)
  Sender: FDA-Public Use
  Company Number: US-PFIZER INC-2012111395

PATIENT
  Age: 84 Year
  Sex: Female
  Weight: 86.17 kg

DRUGS (2)
  1. LYRICA [Suspect]
     Indication: SHINGLES
     Dosage: 150 mg daily (one 50mg in morning and two 50mg in evening)
     Route: 048
  2. LYRICA [Suspect]
     Indication: NERVE DAMAGE

REACTIONS (1)
  - Facial pain [Unknown]
